FAERS Safety Report 7226372-0 (Version None)
Quarter: 2011Q1

REPORT INFORMATION
  Report Type: 
  Country: None (occurrence: None)
  Receive Date: 20110114
  Receipt Date: 20110111
  Transmission Date: 20110831
  Serious: Yes (Death, Hospitalization)
  Sender: FDA-Public Use
  Company Number: PHHY2010BE89736

PATIENT
  Sex: Female

DRUGS (4)
  1. GLUCOPHAGE [Concomitant]
     Dosage: 500 MG, UNK
     Dates: start: 20100401
  2. ASAFLOW [Concomitant]
     Dosage: 80 MG, UNK
  3. ALISKIREN [Suspect]
     Indication: HYPERTENSION
     Dosage: 150 MG DAILY
     Dates: start: 20100525, end: 20100701
  4. LIPITOR [Concomitant]
     Dosage: 20 MG

REACTIONS (2)
  - PANCREATIC CARCINOMA [None]
  - MALAISE [None]
